FAERS Safety Report 10312341 (Version 2)
Quarter: 2014Q3

REPORT INFORMATION
  Report Type: Report from Study
  Country: US (occurrence: US)
  Receive Date: 20140718
  Receipt Date: 20140804
  Transmission Date: 20150326
  Serious: Yes (Hospitalization)
  Sender: FDA-Public Use
  Company Number: US-BIOGENIDEC-2014BI067611

PATIENT
  Age: 39 Year
  Sex: Female

DRUGS (2)
  1. TYSABRI [Suspect]
     Active Substance: NATALIZUMAB
     Indication: MULTIPLE SCLEROSIS
     Route: 042
     Dates: start: 20071029, end: 20090309
  2. TYSABRI [Suspect]
     Active Substance: NATALIZUMAB
     Indication: MULTIPLE SCLEROSIS
     Route: 042
     Dates: start: 20120309

REACTIONS (5)
  - Abdominal pain [Recovered/Resolved]
  - Non-alcoholic steatohepatitis [Not Recovered/Not Resolved]
  - Weight decreased [Not Recovered/Not Resolved]
  - Hepatic enzyme increased [Not Recovered/Not Resolved]
  - Chromaturia [Not Recovered/Not Resolved]

NARRATIVE: CASE EVENT DATE: 2014
